FAERS Safety Report 19644863 (Version 1)
Quarter: 2021Q3

REPORT INFORMATION
  Report Type: Spontaneous
  Country: US (occurrence: US)
  Receive Date: 20210802
  Receipt Date: 20210802
  Transmission Date: 20211014
  Serious: Yes (Hospitalization)
  Sender: FDA-Public Use
  Company Number: US-SA-2021SA249300

PATIENT
  Age: 49 Year
  Sex: Female

DRUGS (16)
  1. LAMOTRIGINE. [Concomitant]
     Active Substance: LAMOTRIGINE
  2. BUDESONIDE. [Concomitant]
     Active Substance: BUDESONIDE
     Dosage: UNK
  3. TOUJEO [Concomitant]
     Active Substance: INSULIN GLARGINE
  4. LINZESS [Concomitant]
     Active Substance: LINACLOTIDE
     Dosage: 3MG
  5. IPRATROPIUM [Concomitant]
     Active Substance: IPRATROPIUM
  6. DUPIXENT [Suspect]
     Active Substance: DUPILUMAB
     Indication: ASTHMA
     Dosage: 300 MG, QOW
     Route: 058
     Dates: start: 20210308
  7. SPIRIVA [Concomitant]
     Active Substance: TIOTROPIUM BROMIDE MONOHYDRATE
     Dosage: SPIRIVA AER 1.25 MCG
  8. SUCRALFATE. [Concomitant]
     Active Substance: SUCRALFATE
  9. BUPROPION. [Concomitant]
     Active Substance: BUPROPION
  10. MYRBETRIQ [Concomitant]
     Active Substance: MIRABEGRON
  11. OLOPATADINE. [Concomitant]
     Active Substance: OLOPATADINE
  12. SYNTHROID [Concomitant]
     Active Substance: LEVOTHYROXINE SODIUM
  13. MONTELUKAST [Concomitant]
     Active Substance: MONTELUKAST SODIUM
  14. BYSTOLIC [Concomitant]
     Active Substance: NEBIVOLOL HYDROCHLORIDE
     Dosage: UNK
  15. DICLOFENAC [Concomitant]
     Active Substance: DICLOFENAC
     Dosage: UNK
  16. MEDOX [AMBROXOL HYDROCHLORIDE] [Concomitant]

REACTIONS (2)
  - Dyspnoea [Unknown]
  - Product use issue [Unknown]

NARRATIVE: CASE EVENT DATE: 2021
